FAERS Safety Report 17810082 (Version 3)
Quarter: 2022Q2

REPORT INFORMATION
  Report Type: Report from Study
  Country: None (occurrence: US)
  Receive Date: 20200521
  Receipt Date: 20220412
  Transmission Date: 20220721
  Serious: Yes (Other)
  Sender: FDA-Public Use
  Company Number: US-AKCEA THERAPEUTICS-2020IS001182

PATIENT
  Age: 72 Year
  Sex: Male

DRUGS (3)
  1. TEGSEDI [Suspect]
     Active Substance: INOTERSEN SODIUM
     Indication: Hereditary neuropathic amyloidosis
     Route: 058
  2. DEVICE [Suspect]
     Active Substance: DEVICE
  3. ELIQUIS [Concomitant]
     Active Substance: APIXABAN
     Route: 065
     Dates: start: 2020

REACTIONS (3)
  - Thrombosis [Not Recovered/Not Resolved]
  - Injection site bruising [Unknown]
  - Platelet aggregation test [Unknown]

NARRATIVE: CASE EVENT DATE: 20200101
